FAERS Safety Report 6641527-1 (Version None)
Quarter: 2010Q1

REPORT INFORMATION
  Report Type: 
  Country: None (occurrence: None)
  Receive Date: 20100317
  Receipt Date: 20100317
  Transmission Date: 20100710
  Serious: Yes (Death)
  Sender: FDA-Public Use
  Company Number: None

PATIENT
  Sex: Female

DRUGS (1)
  1. BOTOX [Suspect]
     Indication: MULTIPLE SCLEROSIS
     Dosage: 100 MCG AS DIRECTED IM
     Route: 030
     Dates: start: 20091104, end: 20100315

REACTIONS (1)
  - DEATH [None]
